FAERS Safety Report 5120160-7 (Version None)
Quarter: 2006Q4

REPORT INFORMATION
  Report Type: 
  Country: None (occurrence: None)
  Receive Date: 20061002
  Receipt Date: 20061002
  Transmission Date: 20070319
  Serious: Yes (Hospitalization)
  Sender: FDA-Public Use
  Company Number: None

PATIENT
  Age: 78 Year
  Sex: Male

DRUGS (1)
  1. TECHNETIUM TC 99M MPI MDP [Suspect]
     Indication: BONE SCAN
     Dosage: 25MCI SINGLE IV
     Route: 042
     Dates: start: 20060524, end: 20060524

REACTIONS (4)
  - CHEST DISCOMFORT [None]
  - DYSPNOEA [None]
  - FLUSHING [None]
  - HYPOTENSION [None]
